FAERS Safety Report 9167721 (Version 2)
Quarter: 2013Q2

REPORT INFORMATION
  Report Type: Spontaneous
  Country: US (occurrence: US)
  Receive Date: 20130318
  Receipt Date: 20130430
  Transmission Date: 20140414
  Serious: No
  Sender: FDA-Public Use
  Company Number: US-PFIZER INC-2013085184

PATIENT
  Sex: 0

DRUGS (2)
  1. MORPHINE SULFATE [Suspect]
     Dosage: UNK
  2. CYMBALTA [Suspect]
     Indication: MAJOR DEPRESSION
     Dosage: 60 MG, 1X/DAY
     Route: 048
     Dates: start: 20111101, end: 20111107

REACTIONS (1)
  - Drug hypersensitivity [Unknown]
